FAERS Safety Report 7347335-0 (Version None)
Quarter: 2011Q1

REPORT INFORMATION
  Report Type: 
  Country: None (occurrence: None)
  Receive Date: 20110303
  Receipt Date: 20110224
  Transmission Date: 20110831
  Serious: Yes (Other)
  Sender: FDA-Public Use
  Company Number: 2011GW000052

PATIENT
  Age: 41 Year
  Sex: Female

DRUGS (1)
  1. ALDARA [Suspect]
     Indication: BASAL CELL CARCINOMA
     Dosage: 5 PCT; 5XW; TOP
     Route: 061
     Dates: start: 20090131

REACTIONS (7)
  - APPLICATION SITE SCAB [None]
  - APPLICATION SITE REACTION [None]
  - COELIAC DISEASE [None]
  - COLITIS [None]
  - DYSPEPSIA [None]
  - APPLICATION SITE ERYTHEMA [None]
  - OPEN WOUND [None]
